FAERS Safety Report 5010735-8 (Version None)
Quarter: 2006Q2

REPORT INFORMATION
  Report Type: 
  Country: None (occurrence: None)
  Receive Date: 20060523
  Receipt Date: 20060508
  Transmission Date: 20061013
  Serious: Yes (Hospitalization, Other)
  Sender: FDA-Public Use
  Company Number: US-2006-003843

PATIENT
  Age: 43 Year
  Sex: Female

DRUGS (1)
  1. BETASERON [Suspect]
     Indication: MULTIPLE SCLEROSIS
     Dosage: 8  MIU, EVERY 2D, SUBCUTANEOUS
     Route: 058
     Dates: start: 20020211

REACTIONS (8)
  - ARTHRALGIA [None]
  - HYPOAESTHESIA [None]
  - INJECTED LIMB MOBILITY DECREASED [None]
  - INJECTION SITE ATROPHY [None]
  - INJECTION SITE NERVE DAMAGE [None]
  - INSOMNIA [None]
  - PAIN IN EXTREMITY [None]
  - RADIAL NERVE PALSY [None]
